FAERS Safety Report 4552026-5 (Version None)
Quarter: 2004Q4

REPORT INFORMATION
  Report Type: 
  Country: None (occurrence: None)
  Receive Date: 20041217
  Receipt Date: 20040819
  Transmission Date: 20050328
  Serious: No
  Sender: FDA-Public Use
  Company Number: 2004-BP-07025BP

PATIENT
  Sex: Female

DRUGS (4)
  1. SPIRIVA [Suspect]
     Indication: CHRONIC OBSTRUCTIVE AIRWAYS DISEASE
     Dosage: 18 MCG (18 MCG ONCE DAILY) IH
     Route: 055
     Dates: start: 20040819
  2. FORADIL [Concomitant]
  3. COUMADIN [Concomitant]
  4. COMBIVENT [Concomitant]

REACTIONS (1)
  - DYSPNOEA [None]
